FAERS Safety Report 9444978 (Version 1)
Quarter: 2013Q3

REPORT INFORMATION
  Report Type: Spontaneous
  Country: GB (occurrence: GB)
  Receive Date: 20130807
  Receipt Date: 20130807
  Transmission Date: 20140515
  Serious: Yes (Other)
  Sender: FDA-Public Use
  Company Number: GB-009507513-1308GBR001979

PATIENT
  Sex: Female

DRUGS (1)
  1. IMPLANON [Suspect]
     Route: 059

REACTIONS (1)
  - Orthopaedic procedure [Unknown]
